FAERS Safety Report 5245545-X (Version None)
Quarter: 2007Q1

REPORT INFORMATION
  Report Type: 
  Country: None (occurrence: None)
  Receive Date: 20070216
  Receipt Date: 20070202
  Transmission Date: 20070707
  Serious: Yes (Other)
  Sender: FDA-Public Use
  Company Number: S07-SAF-00632-01

PATIENT
  Age: 76 Year
  Sex: Male

DRUGS (1)
  1. CITALOPRAM HYDROBROMIDE [Suspect]

REACTIONS (3)
  - ALBUMINURIA [None]
  - PROTEIN TOTAL INCREASED [None]
  - RENAL DISORDER [None]
